FAERS Safety Report 16937007 (Version 1)
Quarter: 2019Q4

REPORT INFORMATION
  Report Type: Spontaneous
  Country: None (occurrence: US)
  Receive Date: 20191018
  Receipt Date: 20191018
  Transmission Date: 20200122
  Serious: Yes (Other)
  Sender: FDA-Public Use
  Company Number: US-IMPRIMIS NJOF-2075830

PATIENT

DRUGS (1)
  1. TRIAMCINOLONE-MOXIFLOXACIN (15/1) MG/ML [Suspect]
     Active Substance: MOXIFLOXACIN\TRIAMCINOLONE
     Indication: CATARACT OPERATION
     Route: 031

REACTIONS (1)
  - Inflammation [Recovered/Resolved]
